FAERS Safety Report 25335297 (Version 2)
Quarter: 2025Q2

REPORT INFORMATION
  Report Type: Spontaneous
  Country: JP (occurrence: JP)
  Receive Date: 20250520
  Receipt Date: 20250613
  Transmission Date: 20250717
  Serious: Yes (Hospitalization)
  Sender: ACCORD
  Company Number: JP-Accord-485759

PATIENT
  Age: 51 Year
  Sex: Male
  Weight: 53.3 kg

DRUGS (2)
  1. CLOZAPINE [Suspect]
     Active Substance: CLOZAPINE
     Indication: Schizophrenia
     Dosage: INITIATED AND THE DOSE WAS TITRATED TO 250 MG/DAY. FURTHER INCREASED
     Route: 048
  2. RISPERIDONE [Concomitant]
     Active Substance: RISPERIDONE
     Indication: Schizophrenia
     Dosage: TITRATED UP TO 4 MG

REACTIONS (3)
  - Agranulocytosis [Recovered/Resolved]
  - Systemic mycosis [Recovered/Resolved]
  - Bronchopulmonary aspergillosis [Recovered/Resolved]
